FAERS Safety Report 24697225 (Version 1)
Quarter: 2024Q4

REPORT INFORMATION
  Report Type: Spontaneous
  Country: CH (occurrence: CH)
  Receive Date: 20241204
  Receipt Date: 20241204
  Transmission Date: 20250114
  Serious: Yes (Hospitalization, Other)
  Sender: BAXTER
  Company Number: None

PATIENT
  Age: 14 Year
  Sex: Male
  Weight: 51 kg

DRUGS (12)
  1. CYCLOPHOSPHAMIDE [Suspect]
     Active Substance: CYCLOPHOSPHAMIDE
     Indication: Precursor T-lymphoblastic lymphoma/leukaemia stage IV
     Dosage: 200 MG/M2, ONCE A DAY
     Route: 040
     Dates: start: 20240912, end: 20240912
  2. CYCLOPHOSPHAMIDE [Suspect]
     Active Substance: CYCLOPHOSPHAMIDE
     Dosage: 200 MG/M2, EVERY 12 H
     Route: 040
     Dates: start: 20240913, end: 20240913
  3. CYCLOPHOSPHAMIDE [Suspect]
     Active Substance: CYCLOPHOSPHAMIDE
     Dosage: 200 MG/M2, EVERY 12 H
     Route: 040
     Dates: start: 20240914, end: 20240914
  4. METHOTREXATE [Suspect]
     Active Substance: METHOTREXATE
     Indication: Precursor T-lymphoblastic lymphoma/leukaemia stage IV
     Dosage: 5 DOSAGE FORM, 1 TOTAL
     Route: 040
     Dates: start: 20240911, end: 20240911
  5. METHOTREXATE [Suspect]
     Active Substance: METHOTREXATE
     Dosage: UNK, (THERAPY START DATE: SEP-2024, THERAPY STOP DATE: SEP-2024)
     Route: 037
  6. CYTARABINE [Suspect]
     Active Substance: CYTARABINE
     Indication: Precursor T-lymphoblastic lymphoma/leukaemia stage IV
     Dosage: 2 MG/M2, 1 TOTAL
     Route: 040
     Dates: start: 20240915, end: 20240915
  7. CYTARABINE [Suspect]
     Active Substance: CYTARABINE
     Dosage: UNK, (THERAPY START DATE: SEP-2024, THERAPY STOP DATE: SEP-2024)
     Route: 037
  8. CYTARABINE [Suspect]
     Active Substance: CYTARABINE
     Dosage: 2 MG/M2, 1 TOTAL
     Route: 040
     Dates: start: 20240916, end: 20240916
  9. VINCRISTINE [Suspect]
     Active Substance: VINCRISTINE
     Indication: Precursor T-lymphoblastic lymphoma/leukaemia stage IV
     Dosage: 1.27 MG/M2, 1 TOTAL
     Route: 040
     Dates: start: 20240911, end: 20240911
  10. VINCRISTINE [Suspect]
     Active Substance: VINCRISTINE
     Dosage: 1.27 MG/M2, 1 TOTAL
     Route: 040
     Dates: start: 20240916, end: 20240916
  11. DEXAMETHASONE [Suspect]
     Active Substance: DEXAMETHASONE
     Indication: Precursor T-lymphoblastic lymphoma/leukaemia stage IV
     Dosage: 6.35 MG/M2, EVERY 8H
     Route: 048
     Dates: start: 20240911, end: 20240915
  12. PREDNISOLONE [Suspect]
     Active Substance: PREDNISOLONE
     Indication: Precursor T-lymphoblastic lymphoma/leukaemia stage IV
     Dosage: UNK, (THERAPY START DATE: SEP-2024, THERAPY STOP DATE: SEP-2024)
     Route: 037

REACTIONS (17)
  - Capillary leak syndrome [Not Recovered/Not Resolved]
  - Small intestinal perforation [Not Recovered/Not Resolved]
  - Polyserositis [Not Recovered/Not Resolved]
  - Pancreatitis [Not Recovered/Not Resolved]
  - Enterocolitis haemorrhagic [Not Recovered/Not Resolved]
  - Mucosal inflammation [Not Recovered/Not Resolved]
  - Escherichia sepsis [Not Recovered/Not Resolved]
  - Neutropenia [Not Recovered/Not Resolved]
  - Acute kidney injury [Not Recovered/Not Resolved]
  - Cholestasis [Not Recovered/Not Resolved]
  - Pancytopenia [Not Recovered/Not Resolved]
  - Cytomegalovirus infection reactivation [Not Recovered/Not Resolved]
  - Gastrointestinal mucormycosis [Not Recovered/Not Resolved]
  - Neuropathy peripheral [Not Recovered/Not Resolved]
  - Staphylococcus test positive [Not Recovered/Not Resolved]
  - Herpes simplex reactivation [Not Recovered/Not Resolved]
  - Human herpesvirus 6 infection reactivation [Not Recovered/Not Resolved]

NARRATIVE: CASE EVENT DATE: 20240916
